FAERS Safety Report 9416596 (Version 1)
Quarter: 2013Q3

REPORT INFORMATION
  Report Type: Spontaneous
  Country: US (occurrence: None)
  Receive Date: 20130719
  Receipt Date: 20130719
  Transmission Date: 20140515
  Serious: Yes (Other)
  Sender: FDA-Public Use
  Company Number: 2013AP006536

PATIENT
  Sex: Male

DRUGS (2)
  1. FLUVOXAMINE [Suspect]
  2. CYMBALTA [Concomitant]

REACTIONS (2)
  - Waldenstrom^s macroglobulinaemia [None]
  - Anaemia [None]
